FAERS Safety Report 5827487-1 (Version None)
Quarter: 2008Q3

REPORT INFORMATION
  Report Type: 
  Country: None (occurrence: None)
  Receive Date: 20080730
  Receipt Date: 20080724
  Transmission Date: 20090109
  Serious: Yes (Death, Hospitalization)
  Sender: FDA-Public Use
  Company Number: AU-ASTRAZENECA-2008AP05641

PATIENT
  Sex: Male

DRUGS (3)
  1. MEROPENEM [Suspect]
     Route: 042
  2. MORPHINE SULFATE [Suspect]
     Route: 065
  3. VANCOMYCIN HYDROCHLORIDE [Suspect]
     Route: 065

REACTIONS (1)
  - ANAPHYLACTIC REACTION [None]
